FAERS Safety Report 21511148 (Version 1)
Quarter: 2022Q4

REPORT INFORMATION
  Report Type: Spontaneous
  Country: US (occurrence: US)
  Receive Date: 20221027
  Receipt Date: 20221027
  Transmission Date: 20230113
  Serious: Yes (Hospitalization, Other)
  Sender: FDA-Public Use
  Company Number: US-BoehringerIngelheim-2022-BI-198759

PATIENT
  Age: 63 Year
  Sex: Male

DRUGS (1)
  1. EMPAGLIFLOZIN [Suspect]
     Active Substance: EMPAGLIFLOZIN
     Indication: Diabetes mellitus inadequate control

REACTIONS (9)
  - Mucormycosis [Unknown]
  - Acute kidney injury [Unknown]
  - Emphysematous cystitis [Unknown]
  - Hydronephrosis [Unknown]
  - Pyelitis [Unknown]
  - Nephrolithiasis [Unknown]
  - Necrosis [Unknown]
  - Hydronephrosis [Unknown]
  - Ureteric injury [Unknown]
